FAERS Safety Report 25596581 (Version 1)
Quarter: 2025Q3

REPORT INFORMATION
  Report Type: Spontaneous
  Country: EU (occurrence: EU)
  Receive Date: 20250723
  Receipt Date: 20250723
  Transmission Date: 20251020
  Serious: Yes (Other)
  Sender: PFIZER
  Company Number: None

PATIENT
  Age: 44 Year
  Sex: Female
  Weight: 96 kg

DRUGS (1)
  1. PAMIDRONATE DISODIUM [Suspect]
     Active Substance: PAMIDRONATE DISODIUM
     Indication: SAPHO syndrome
     Dosage: 60 MG WITH THE INTERVAL OF 24HOURS
     Route: 042
     Dates: start: 20250409, end: 20250411

REACTIONS (2)
  - Superficial vein thrombosis [Recovering/Resolving]
  - Off label use [Unknown]

NARRATIVE: CASE EVENT DATE: 20250409
